FAERS Safety Report 8099943-X (Version None)
Quarter: 2012Q1

REPORT INFORMATION
  Report Type: 
  Country: None (occurrence: None)
  Receive Date: 20120129
  Receipt Date: 20111208
  Transmission Date: 20120608
  Serious: No
  Sender: FDA-Public Use
  Company Number: US-ABBOTT-11P-163-0878202-00

PATIENT
  Sex: Female
  Weight: 45.4 kg

DRUGS (9)
  1. METHOTREXATE [Concomitant]
     Indication: RHEUMATOID ARTHRITIS
     Dosage: 2.5 MG - 7 TABLETS WEEKLY
     Route: 048
  2. HUMIRA [Suspect]
     Indication: RHEUMATOID ARTHRITIS
     Dates: start: 20111125
  3. HYDROXYCHLOROQUINE SULFATE [Concomitant]
     Indication: SYSTEMIC LUPUS ERYTHEMATOSUS
     Dosage: 200 MG - TWO TABLETS EVERY DAY
     Route: 048
  4. AMBIEN [Concomitant]
     Indication: SLEEP DISORDER THERAPY
     Dosage: AT NIGHT
     Route: 048
  5. FOLIC ACID [Concomitant]
     Indication: PRODUCT USED FOR UNKNOWN INDICATION
  6. CALCIUM [Concomitant]
     Indication: PRODUCT USED FOR UNKNOWN INDICATION
  7. VICODIN [Concomitant]
     Indication: PAIN
     Dosage: 5/500 - 1-4 TABLETS DAILY
  8. METHYTHYROXINE [Concomitant]
     Indication: THYROID DISORDER
     Dosage: 0.1 MG - EVERY DAY
  9. VITAMIN D [Concomitant]
     Indication: PRODUCT USED FOR UNKNOWN INDICATION

REACTIONS (4)
  - ERYTHEMA [None]
  - INJECTION SITE PAIN [None]
  - INJECTION SITE HAEMORRHAGE [None]
  - URTICARIA [None]
